FAERS Safety Report 5279009-4 (Version None)
Quarter: 2007Q1

REPORT INFORMATION
  Report Type: 
  Country: None (occurrence: None)
  Receive Date: 20070328
  Receipt Date: 20060928
  Transmission Date: 20070707
  Serious: No
  Sender: FDA-Public Use
  Company Number: US-AMGEN-KDL195008

PATIENT
  Sex: Male
  Weight: 65.8 kg

DRUGS (5)
  1. NEULASTA [Suspect]
     Indication: CHEMOTHERAPY
     Route: 065
     Dates: start: 20060920
  2. FENTANYL [Concomitant]
     Route: 062
  3. VICODIN [Concomitant]
     Route: 065
  4. MORPHINE SULFATE [Concomitant]
     Route: 065
  5. ANTIHYPERTENSIVE MEDICATION NOS [Concomitant]
     Route: 065

REACTIONS (1)
  - ABDOMINAL DISCOMFORT [None]
